FAERS Safety Report 23300690 (Version 1)
Quarter: 2023Q4

REPORT INFORMATION
  Report Type: Spontaneous
  Country: KR (occurrence: None)
  Receive Date: 20231215
  Receipt Date: 20231215
  Transmission Date: 20240109
  Serious: Yes (Other)
  Sender: FDA-Public Use
  Company Number: 2023A283010

PATIENT
  Age: 60 Year
  Sex: Female

DRUGS (2)
  1. GEFITINIB [Suspect]
     Active Substance: GEFITINIB
     Route: 048
     Dates: start: 201905
  2. OSIMERTINIB [Concomitant]
     Active Substance: OSIMERTINIB
     Dates: start: 202203

REACTIONS (1)
  - Malignant neoplasm progression [Unknown]
